FAERS Safety Report 7383222-X (Version None)
Quarter: 2011Q1

REPORT INFORMATION
  Report Type: 
  Country: None (occurrence: None)
  Receive Date: 20110324
  Receipt Date: 20110324
  Transmission Date: 20110831
  Serious: No
  Sender: FDA-Public Use
  Company Number: None

PATIENT
  Age: 64 Year
  Sex: Female
  Weight: 56.6996 kg

DRUGS (2)
  1. CALCITONIN [Suspect]
     Indication: OSTEOPOROSIS
     Dates: start: 20100101
  2. FORTICAL [Suspect]
     Indication: OSTEOPENIA
     Dosage: 1 SPRAY IN ALTERNATE NOSTRILS DAILY
     Dates: start: 20080101

REACTIONS (2)
  - SNEEZING [None]
  - OSTEOPOROSIS [None]
